FAERS Safety Report 5447285-0 (Version None)
Quarter: 2007Q3

REPORT INFORMATION
  Report Type: 
  Country: None (occurrence: None)
  Receive Date: 20070910
  Receipt Date: 20070831
  Transmission Date: 20080115
  Serious: Yes (Other)
  Sender: FDA-Public Use
  Company Number: GB-JNJFOC-20070804891

PATIENT
  Age: 15 Year
  Sex: Female

DRUGS (3)
  1. CONCERTA [Suspect]
     Indication: DISTURBANCE IN ATTENTION
     Route: 048
  2. CONCERTA [Suspect]
     Route: 048
  3. CONCERTA [Suspect]
     Indication: ATTENTION DEFICIT/HYPERACTIVITY DISORDER
     Route: 048

REACTIONS (6)
  - BLOOD PRESSURE INCREASED [None]
  - CHEST PAIN [None]
  - DIZZINESS [None]
  - DYSPNOEA [None]
  - LOSS OF CONSCIOUSNESS [None]
  - NERVOUSNESS [None]
